FAERS Safety Report 8800689 (Version 2)
Quarter: 2015Q2

REPORT INFORMATION
  Report Type: Report from Study
  Country: US (occurrence: US)
  Receive Date: 20120921
  Receipt Date: 20150618
  Transmission Date: 20150821
  Serious: Yes (Death)
  Sender: FDA-Public Use
  Company Number: US-ROCHE-1104598

PATIENT
  Sex: Male
  Weight: 95.45 kg

DRUGS (8)
  1. ALBUTEROL. [Concomitant]
     Active Substance: ALBUTEROL
     Route: 065
  2. TYLENOL [Concomitant]
     Active Substance: ACETAMINOPHEN
     Route: 065
  3. ATIVAN [Concomitant]
     Active Substance: LORAZEPAM
     Route: 065
  4. CGC-11047 [Concomitant]
     Route: 042
  5. NORMAL SALINE [Concomitant]
     Active Substance: SODIUM CHLORIDE
     Route: 065
  6. BENADRYL [Concomitant]
     Active Substance: DIPHENHYDRAMINE HYDROCHLORIDE
     Route: 065
  7. AVASTIN [Suspect]
     Active Substance: BEVACIZUMAB
     Indication: PANCREATIC CARCINOMA
     Route: 042
     Dates: start: 20061025
  8. BENADRYL [Concomitant]
     Active Substance: DIPHENHYDRAMINE HYDROCHLORIDE
     Route: 065

REACTIONS (8)
  - Fatigue [Unknown]
  - Dyspnoea [Unknown]
  - Death [Fatal]
  - Musculoskeletal chest pain [Unknown]
  - Asthenia [Unknown]
  - Contusion [Unknown]
  - Cough [Unknown]
  - Off label use [Unknown]
